FAERS Safety Report 22132731 (Version 2)
Quarter: 2023Q1

REPORT INFORMATION
  Report Type: Spontaneous
  Country: HR (occurrence: None)
  Receive Date: 20230323
  Receipt Date: 20230331
  Transmission Date: 20230417
  Serious: Yes (Death)
  Sender: FDA-Public Use
  Company Number: 2023A066475

PATIENT
  Age: 81 Year
  Sex: Female

DRUGS (5)
  1. QUETIAPINE [Suspect]
     Active Substance: QUETIAPINE
     Indication: Product used for unknown indication
     Dosage: 1.12 DOSAGE 25
     Route: 048
     Dates: start: 20221230
  2. DOXYCYCLINE [Suspect]
     Active Substance: DOXYCYCLINE
     Route: 048
  3. LORAZEPAM [Suspect]
     Active Substance: LORAZEPAM
     Dosage: 2X1 DOSAGE 2X1
     Route: 048
  4. ACETAMINOPHEN [Suspect]
     Active Substance: ACETAMINOPHEN
     Dosage: 1G I.V
     Route: 042
  5. SULPIRIDE [Suspect]
     Active Substance: SULPIRIDE

REACTIONS (9)
  - Tachycardia [Fatal]
  - Pneumonia [Fatal]
  - Vomiting [Fatal]
  - Speech disorder [Fatal]
  - Cystitis [Fatal]
  - Diarrhoea [Fatal]
  - Amnesia [Fatal]
  - Pyrexia [Fatal]
  - Cardiac failure [Fatal]

NARRATIVE: CASE EVENT DATE: 20221130
